FAERS Safety Report 5578566-8 (Version None)
Quarter: 2007Q4

REPORT INFORMATION
  Report Type: 
  Country: None (occurrence: None)
  Receive Date: 20071231
  Receipt Date: 20071219
  Transmission Date: 20080405
  Serious: Yes (Hospitalization)
  Sender: FDA-Public Use
  Company Number: JP-PFIZER INC-2007106601

PATIENT
  Age: 29 Year
  Sex: Male
  Weight: 95 kg

DRUGS (5)
  1. SOLU-MEDROL [Suspect]
     Indication: ASTHMA
     Route: 042
     Dates: start: 20071025, end: 20071025
  2. SEREVENT [Concomitant]
     Route: 055
  3. PULMICORT [Concomitant]
     Route: 055
  4. UNIPHYL [Concomitant]
     Route: 048
  5. MONTELUKAST SODIUM [Concomitant]
     Route: 048

REACTIONS (1)
  - ANALGESIC ASTHMA SYNDROME [None]
